FAERS Safety Report 15788979 (Version 1)
Quarter: 2018Q4

REPORT INFORMATION
  Report Type: Spontaneous
  Country: US (occurrence: US)
  Receive Date: 20181228
  Receipt Date: 20181228
  Transmission Date: 20190205
  Serious: No
  Sender: FDA-Public Use
  Company Number: None

PATIENT

DRUGS (2)
  1. OMNIPAQUE [Suspect]
     Active Substance: IOHEXOL
     Dosage: ?          OTHER FREQUENCY:SINGLE DOSE VIAL;OTHER ROUTE:INJECTION?
  2. OMNIPAQUE [Suspect]
     Active Substance: IOHEXOL
     Dosage: ?          OTHER FREQUENCY:VIAL;OTHER ROUTE:INJECTION?

REACTIONS (1)
  - Product label confusion [None]
